FAERS Safety Report 9907278 (Version 1)
Quarter: 2014Q1

REPORT INFORMATION
  Report Type: Spontaneous
  Country: IT (occurrence: IT)
  Receive Date: 20140218
  Receipt Date: 20140218
  Transmission Date: 20141002
  Serious: Yes (Other)
  Sender: FDA-Public Use
  Company Number: IT-MYLANLABS-2014S1002756

PATIENT
  Age: 47 Year
  Sex: Female

DRUGS (3)
  1. LANSOPRAZOLE [Suspect]
     Indication: ABDOMINAL PAIN UPPER
     Dosage: 15 MG DAILY
     Route: 048
     Dates: start: 20131115, end: 20131119
  2. LYRICA [Interacting]
     Indication: POSTOPERATIVE ANALGESIA
     Dosage: 1 DF DAILY
     Route: 048
     Dates: start: 20131115, end: 20131119
  3. SUPRADYN /07499601/ [Interacting]
     Indication: VITAMIN SUPPLEMENTATION
     Route: 048
     Dates: start: 20131119, end: 20131119

REACTIONS (2)
  - Hypersensitivity [Recovered/Resolved]
  - Drug interaction [Recovered/Resolved]
